FAERS Safety Report 8221535 (Version 2)
Quarter: 2013Q1

REPORT INFORMATION
  Report Type: Spontaneous
  Country: US (occurrence: US)
  Receive Date: 20111102
  Receipt Date: 20130220
  Transmission Date: 20140127
  Serious: Yes (Other)
  Sender: FDA-Public Use
  Company Number: US-ROCHE-1008223

PATIENT
  Sex: Male
  Weight: 86.26 kg

DRUGS (3)
  1. ACCUTANE [Suspect]
     Indication: ACNE
     Route: 048
     Dates: start: 1985
  2. ACCUTANE [Suspect]
     Route: 048
     Dates: start: 19860110, end: 19860624
  3. ACCUTANE [Suspect]
     Route: 048
     Dates: start: 199412

REACTIONS (5)
  - Inflammatory bowel disease [Unknown]
  - Crohn^s disease [Unknown]
  - Irritable bowel syndrome [Unknown]
  - Injury [Unknown]
  - Depression [Unknown]
